FAERS Safety Report 4639363-0 (Version None)
Quarter: 2005Q2

REPORT INFORMATION
  Report Type: 
  Country: None (occurrence: None)
  Receive Date: 20050418
  Receipt Date: 20050401
  Transmission Date: 20051028
  Serious: Yes (Hospitalization)
  Sender: FDA-Public Use
  Company Number: 2005-DE-01316PO

PATIENT
  Age: 49 Year
  Sex: Male

DRUGS (3)
  1. VIRAMUNE [Suspect]
     Dosage: (200 MG) PO
     Route: 048
     Dates: start: 20050215, end: 20050313
  2. LAMIVUDINE+ZIDOVUDINE (NR) [Concomitant]
  3. PARACETAMOL (PARACETAMOL) (NR) [Concomitant]

REACTIONS (5)
  - EXANTHEM [None]
  - HEPATITIS [None]
  - HYPERSENSITIVITY [None]
  - PYREXIA [None]
  - RHABDOMYOLYSIS [None]
